FAERS Safety Report 17758414 (Version 3)
Quarter: 2020Q4

REPORT INFORMATION
  Report Type: Spontaneous
  Country: US (occurrence: US)
  Receive Date: 20200507
  Receipt Date: 20201002
  Transmission Date: 20210113
  Serious: Yes (Disabling, Other)
  Sender: FDA-Public Use
  Company Number: US-GILEAD-2020-0463800

PATIENT
  Age: 28 Year
  Sex: Male

DRUGS (1)
  1. TRUVADA [Suspect]
     Active Substance: EMTRICITABINE\TENOFOVIR DISOPROXIL FUMARATE
     Indication: PROPHYLAXIS AGAINST HIV INFECTION
     Dosage: UNK
     Route: 048
     Dates: start: 2015, end: 2017

REACTIONS (3)
  - Bone density decreased [Unknown]
  - Tooth loss [Unknown]
  - Fracture [Not Recovered/Not Resolved]

NARRATIVE: CASE EVENT DATE: 2015
